FAERS Safety Report 18430785 (Version 1)
Quarter: 2020Q4

REPORT INFORMATION
  Report Type: Spontaneous
  Country: GB (occurrence: GB)
  Receive Date: 20201027
  Receipt Date: 20201027
  Transmission Date: 20210114
  Serious: Yes (Life-Threatening, Hospitalization, Other)
  Sender: FDA-Public Use
  Company Number: GB-TEVA-2020-GB-1840986

PATIENT
  Age: 31 Year
  Sex: Female
  Weight: 52.61 kg

DRUGS (2)
  1. QUETIAPINE. [Concomitant]
     Active Substance: QUETIAPINE
  2. NAPROXEN. [Suspect]
     Active Substance: NAPROXEN
     Indication: BACK PAIN
     Dosage: 500 MG
     Route: 048
     Dates: start: 20200812, end: 20200917

REACTIONS (11)
  - Faeces discoloured [Recovered/Resolved with Sequelae]
  - Tachycardia [Unknown]
  - Fatigue [Recovered/Resolved]
  - Gastritis erosive [Unknown]
  - Dyspepsia [Recovered/Resolved with Sequelae]
  - Back pain [Recovered/Resolved with Sequelae]
  - Heart rate increased [Unknown]
  - Palpitations [Recovered/Resolved]
  - Hypopnoea [Recovered/Resolved with Sequelae]
  - Mouth ulceration [Recovered/Resolved]
  - Gastrointestinal haemorrhage [Recovered/Resolved with Sequelae]

NARRATIVE: CASE EVENT DATE: 20200812
